FAERS Safety Report 5402517-X (Version None)
Quarter: 2007Q3

REPORT INFORMATION
  Report Type: 
  Country: None (occurrence: None)
  Receive Date: 20070801
  Receipt Date: 20060921
  Transmission Date: 20080115
  Serious: No
  Sender: FDA-Public Use
  Company Number: A0621033A

PATIENT
  Age: 65 Year
  Sex: Female
  Weight: 77.3 kg

DRUGS (7)
  1. IMITREX [Suspect]
     Indication: MIGRAINE
     Dosage: 100MG AS REQUIRED
     Route: 048
  2. BYETTA [Suspect]
     Dosage: 5MCG TWICE PER DAY
     Route: 058
     Dates: start: 20060301
  3. GLYBURIDE [Concomitant]
     Dates: start: 20020101
  4. ACTOS [Concomitant]
  5. NORMODYNE [Concomitant]
     Dates: end: 20060701
  6. MAXZIDE [Concomitant]
     Dates: start: 20040101
  7. LEXAPRO [Concomitant]

REACTIONS (7)
  - BLOOD GLUCOSE INCREASED [None]
  - BLOOD PRESSURE DECREASED [None]
  - DIZZINESS [None]
  - DRUG EFFECT DECREASED [None]
  - DRUG INTERACTION [None]
  - HEADACHE [None]
  - WEIGHT DECREASED [None]
